FAERS Safety Report 6825219-1 (Version None)
Quarter: 2010Q3

REPORT INFORMATION
  Report Type: 
  Country: None (occurrence: None)
  Receive Date: 20100708
  Receipt Date: 20061121
  Transmission Date: 20110219
  Serious: No
  Sender: FDA-Public Use
  Company Number: US-PFIZER INC-2006147672

PATIENT
  Sex: Female
  Weight: 52.62 kg

DRUGS (17)
  1. CHANTIX [Suspect]
     Indication: SMOKING CESSATION THERAPY
     Dates: start: 20061116
  2. THYROID TAB [Concomitant]
  3. ALL OTHER THERAPEUTIC PRODUCTS [Concomitant]
  4. LEXAPRO [Concomitant]
  5. PREGNENOLONE [Concomitant]
  6. ESTRADIOL [Concomitant]
  7. ACETYLSALICYLIC ACID [Concomitant]
  8. PROGESTERONE [Concomitant]
  9. TESTOSTERONE [Concomitant]
  10. FLEXERIL [Concomitant]
  11. KLONOPIN [Concomitant]
     Dates: end: 20061120
  12. GENOTROPIN [Concomitant]
  13. MELATONIN [Concomitant]
  14. CALCIUM CARBONATE [Concomitant]
  15. VITAMIN D [Concomitant]
  16. SEROQUEL [Concomitant]
     Dates: start: 20061120
  17. AMBIEN [Concomitant]

REACTIONS (3)
  - DRY MOUTH [None]
  - FEELING JITTERY [None]
  - INSOMNIA [None]
